FAERS Safety Report 18516081 (Version 1)
Quarter: 2020Q4

REPORT INFORMATION
  Report Type: Spontaneous
  Country: US (occurrence: US)
  Receive Date: 20201117
  Receipt Date: 20201117
  Transmission Date: 20210114
  Serious: Yes (Other)
  Sender: FDA-Public Use
  Company Number: None

PATIENT
  Age: 37 Year
  Sex: Female

DRUGS (6)
  1. ONDANSETRON [Suspect]
     Active Substance: ONDANSETRON
  2. FUROSEMIDE. [Suspect]
     Active Substance: FUROSEMIDE
  3. EPLERENONE. [Suspect]
     Active Substance: EPLERENONE
  4. OPSUMIT [Suspect]
     Active Substance: MACITENTAN
     Indication: PULMONARY HYPERTENSION
     Route: 048
     Dates: start: 201811
  5. SILDENAFIL. [Suspect]
     Active Substance: SILDENAFIL
  6. QVAR [Suspect]
     Active Substance: BECLOMETHASONE DIPROPIONATE

REACTIONS (2)
  - Transient ischaemic attack [None]
  - Amphetamines positive [None]

NARRATIVE: CASE EVENT DATE: 20201016
